FAERS Safety Report 8428150 (Version 2)
Quarter: 2018Q1

REPORT INFORMATION
  Report Type: Report from Study
  Country: US (occurrence: US)
  Receive Date: 20120227
  Receipt Date: 20180208
  Transmission Date: 20180509
  Serious: Yes (Hospitalization)
  Sender: FDA-Public Use
  Company Number: US-ROCHE-1032279

PATIENT
  Age: 9 Month
  Sex: Female
  Weight: 1.59 kg

DRUGS (2)
  1. OMALIZUMAB. [Suspect]
     Active Substance: OMALIZUMAB
     Indication: PRODUCT USED FOR UNKNOWN INDICATION
     Dosage: LAST DOSE PRIOR TO ONSET OF PNEUMONIA: 21/DEC/2010
     Route: 064
     Dates: start: 20100422
  2. TRI VI SOL [Concomitant]
     Route: 048
     Dates: start: 20110102, end: 20110128

REACTIONS (2)
  - Maternal exposure timing unspecified [Unknown]
  - Pneumonia [Recovered/Resolved]

NARRATIVE: CASE EVENT DATE: 20111026
